FAERS Safety Report 5689167-5 (Version None)
Quarter: 2008Q1

REPORT INFORMATION
  Report Type: 
  Country: None (occurrence: None)
  Receive Date: 20080331
  Receipt Date: 20080327
  Transmission Date: 20080703
  Serious: Yes (Other)
  Sender: FDA-Public Use
  Company Number: US-KINGPHARMUSA00001-K200800368

PATIENT

DRUGS (1)
  1. CORGARD [Suspect]
     Indication: LONG QT SYNDROME
     Dosage: 20 MG, UNK
     Route: 048
     Dates: start: 20060330

REACTIONS (2)
  - BLOOD GLUCOSE DECREASED [None]
  - HYPOGLYCAEMIC SEIZURE [None]
